FAERS Safety Report 25169563 (Version 1)
Quarter: 2025Q2

REPORT INFORMATION
  Report Type: Spontaneous
  Country: US (occurrence: US)
  Receive Date: 20250407
  Receipt Date: 20250407
  Transmission Date: 20250716
  Serious: No
  Sender: BAUSCH AND LOMB
  Company Number: US-BAUSCHBL-2025BNL005650

PATIENT
  Age: 64 Year
  Sex: Female
  Weight: 72 kg

DRUGS (5)
  1. XIIDRA [Suspect]
     Active Substance: LIFITEGRAST
     Indication: Dry eye
     Dosage: ONLY ONCE A DAY
     Route: 048
     Dates: start: 20250116, end: 20250328
  2. XIIDRA [Suspect]
     Active Substance: LIFITEGRAST
     Dosage: 1 DROP TWICE A DAY
     Route: 048
     Dates: start: 2025
  3. SACCHAROMYCES CEREVISIAE [Concomitant]
     Active Substance: SACCHAROMYCES CEREVISIAE
     Indication: Product used for unknown indication
     Route: 065
  4. OMEGA 3 [Concomitant]
     Active Substance: CAPSAICIN
     Indication: Product used for unknown indication
     Route: 065
  5. MAGNESIUM [Concomitant]
     Active Substance: MAGNESIUM
     Indication: Product used for unknown indication
     Route: 065

REACTIONS (11)
  - Upper-airway cough syndrome [Recovering/Resolving]
  - Dysgeusia [Recovering/Resolving]
  - Enlarged uvula [Recovering/Resolving]
  - Uvulitis [Recovering/Resolving]
  - Rash [Recovering/Resolving]
  - Pharyngeal erythema [Recovering/Resolving]
  - Tongue erythema [Recovering/Resolving]
  - Swollen tongue [Recovering/Resolving]
  - Inappropriate schedule of product administration [Unknown]
  - Therapy interrupted [Unknown]
  - Product after taste [Unknown]

NARRATIVE: CASE EVENT DATE: 20250101
